FAERS Safety Report 8208644-6 (Version None)
Quarter: 2012Q1

REPORT INFORMATION
  Report Type: 
  Country: None (occurrence: None)
  Receive Date: 20120314
  Receipt Date: 20120308
  Transmission Date: 20120608
  Serious: Yes (Other)
  Sender: FDA-Public Use
  Company Number: US-ROCHE-1019932

PATIENT
  Sex: Female

DRUGS (4)
  1. HUMULIN INSULIN R [Concomitant]
  2. ZONISAMIDE [Concomitant]
  3. RIBASPHERE [Suspect]
     Indication: HEPATITIS C
     Dosage: 1 PILL IN AM AND 1 PILL IN PM
     Dates: start: 20111126
  4. PEGASYS [Suspect]
     Indication: HEPATITIS C
     Dates: start: 20111126

REACTIONS (3)
  - HEPATOMEGALY [None]
  - ABDOMINAL PAIN [None]
  - PYREXIA [None]
